FAERS Safety Report 6726694-3 (Version None)
Quarter: 2010Q2

REPORT INFORMATION
  Report Type: 
  Country: None (occurrence: None)
  Receive Date: 20100514
  Receipt Date: 20100505
  Transmission Date: 20101027
  Serious: Yes (Disabling)
  Sender: FDA-Public Use
  Company Number: US-MERCK-1005USA00695

PATIENT
  Age: 16 Year
  Sex: Male

DRUGS (1)
  1. DECADRON [Suspect]
     Indication: ACUTE LYMPHOCYTIC LEUKAEMIA
     Route: 048

REACTIONS (11)
  - ABNORMAL BEHAVIOUR [None]
  - AFFECT LABILITY [None]
  - DELUSION [None]
  - FLIGHT OF IDEAS [None]
  - INSOMNIA [None]
  - IRRITABILITY [None]
  - MANIA [None]
  - MOOD ALTERED [None]
  - PERSONALITY CHANGE [None]
  - SLEEP DISORDER [None]
  - TANGENTIALITY [None]
